FAERS Safety Report 16180751 (Version 1)
Quarter: 2019Q2

REPORT INFORMATION
  Report Type: Spontaneous
  Country: US (occurrence: US)
  Receive Date: 20190410
  Receipt Date: 20190410
  Transmission Date: 20190711
  Serious: No
  Sender: FDA-Public Use
  Company Number: US-JNJFOC-20190332788

PATIENT
  Age: 54 Year
  Sex: Female
  Weight: 70.31 kg

DRUGS (5)
  1. PAXIL [Concomitant]
     Active Substance: PAROXETINE HYDROCHLORIDE
     Indication: ANXIETY
     Route: 065
  2. PAXIL [Concomitant]
     Active Substance: PAROXETINE HYDROCHLORIDE
     Indication: DEPRESSION
     Route: 065
  3. NATURE-THROID [Concomitant]
     Active Substance: THYROID, PORCINE
     Indication: HYPOTHYROIDISM
     Route: 065
  4. TRAZODONE [Concomitant]
     Active Substance: TRAZODONE HYDROCHLORIDE
     Indication: SLEEP DISORDER
     Route: 065
  5. SIMPONI ARIA [Suspect]
     Active Substance: GOLIMUMAB
     Indication: PSORIASIS
     Route: 042
     Dates: start: 20190308

REACTIONS (10)
  - Headache [Recovering/Resolving]
  - Myalgia [Recovering/Resolving]
  - Fatigue [Not Recovered/Not Resolved]
  - Inappropriate schedule of product administration [Unknown]
  - Blister [Recovering/Resolving]
  - Sensory disturbance [Recovering/Resolving]
  - Decreased appetite [Recovering/Resolving]
  - Psoriasis [Recovering/Resolving]
  - Product use in unapproved indication [Unknown]
  - Off label use [Unknown]

NARRATIVE: CASE EVENT DATE: 201903
